FAERS Safety Report 22383737 (Version 3)
Quarter: 2023Q4

REPORT INFORMATION
  Report Type: Spontaneous
  Country: JP (occurrence: JP)
  Receive Date: 20230530
  Receipt Date: 20231121
  Transmission Date: 20240110
  Serious: Yes (Life-Threatening, Hospitalization, Other)
  Sender: FDA-Public Use
  Company Number: JP-MLMSERVICE-20230518-4292147-1

PATIENT
  Age: 80 Year
  Sex: Female

DRUGS (6)
  1. DOXORUBICIN HYDROCHLORIDE [Suspect]
     Active Substance: DOXORUBICIN HYDROCHLORIDE
     Indication: Hodgkin^s disease stage III
     Dosage: 300 MG/M2, (RECEIVED SIX CYCLES OF DOXORUBICIN THAT STARTED IN JANUARY 201X-2(ABVD))
  2. ENALAPRIL [Concomitant]
     Active Substance: ENALAPRIL
     Dosage: 5 MG ONCE PER DAY
  3. DACARBAZINE [Concomitant]
     Active Substance: DACARBAZINE
     Indication: Hodgkin^s disease stage III
     Dosage: RECEIVED SIX CYCLES STARTED IN JANUARY 201X-2(ABVD)
  4. ATORVASTATIN [Concomitant]
     Active Substance: ATORVASTATIN
     Dosage: 10 MG, 1X/DAY
  5. BLEOMYCIN [Concomitant]
     Active Substance: BLEOMYCIN SULFATE
     Indication: Hodgkin^s disease stage III
     Dosage: RECEIVED SIX CYCLES STARTED IN JANUARY 201X-2(ABVD)
  6. VINBLASTINE [Concomitant]
     Active Substance: VINBLASTINE
     Indication: Hodgkin^s disease stage III
     Dosage: RECEIVED SIX CYCLES STARTED IN JANUARY 201X-2(ABVD)

REACTIONS (3)
  - Cardiomyopathy [Recovering/Resolving]
  - Cardiac failure congestive [Recovering/Resolving]
  - Tachycardia induced cardiomyopathy [Recovering/Resolving]
